FAERS Safety Report 6470343-9 (Version None)
Quarter: 2009Q4

REPORT INFORMATION
  Report Type: 
  Country: None (occurrence: None)
  Receive Date: 20091119
  Receipt Date: 20090623
  Transmission Date: 20100525
  Serious: Yes (Other)
  Sender: FDA-Public Use
  Company Number: 2009-199547-NL

PATIENT
  Age: 32 Year
  Sex: Female
  Weight: 54.4 kg

DRUGS (4)
  1. IMPLANON [Suspect]
     Indication: CONTRACEPTION
     Dosage: SUBDERMAL
     Route: 059
     Dates: start: 20090226
  2. VALTREX [Concomitant]
  3. BUTALBITAL [Concomitant]
  4. ACETAMINOPHEN + CAFFEINE [Concomitant]

REACTIONS (2)
  - METRORRHAGIA [None]
  - WEIGHT DECREASED [None]
